FAERS Safety Report 16070536 (Version 1)
Quarter: 2019Q2

REPORT INFORMATION
  Report Type: Spontaneous
  Country: US (occurrence: US)
  Receive Date: 20190313
  Receipt Date: 20190313
  Transmission Date: 20190711
  Serious: Yes (Other)
  Sender: FDA-Public Use
  Company Number: None

PATIENT
  Age: 78 Year
  Sex: Male
  Weight: 61.2 kg

DRUGS (8)
  1. MYLERAN [Suspect]
     Active Substance: BUSULFAN
     Indication: LYMPHADENITIS
     Route: 048
     Dates: start: 20190214
  2. LEVOCARNITINE FUMARATE [Concomitant]
     Active Substance: LEVOCARNITINE FUMARATE
  3. MULTIVITAMIN [Concomitant]
     Active Substance: VITAMINS
  4. GINKGO BILOBA EXTRACT [Concomitant]
     Active Substance: GINKGO
  5. ASPIRIN 81 [Concomitant]
     Active Substance: ASPIRIN
  6. SAW PALMETTO [Concomitant]
     Active Substance: HERBALS\SAW PALMETTO
  7. VITAMIN A [Concomitant]
     Active Substance: VITAMIN A
  8. CALCIUM 500+D [Concomitant]
     Active Substance: CALCIUM\VITAMIN D

REACTIONS (2)
  - Neutropenia [None]
  - Thrombocytopenia [None]
